FAERS Safety Report 14878920 (Version 2)
Quarter: 2018Q3

REPORT INFORMATION
  Report Type: Spontaneous
  Country: IT (occurrence: IT)
  Receive Date: 20180511
  Receipt Date: 20180820
  Transmission Date: 20181010
  Serious: Yes (Other)
  Sender: FDA-Public Use
  Company Number: IT-SUN PHARMACEUTICAL INDUSTRIES LTD-2018R1-172420

PATIENT
  Age: 73 Year
  Sex: Female
  Weight: 56 kg

DRUGS (2)
  1. SODIO LEVOFOLINATO MEDAC 50 MG/ML SOLUZIONE INIETTABILE O PER INFUSION [Suspect]
     Active Substance: LEVOLEUCOVORIN
     Indication: CHEMOTHERAPY
     Dosage: 200 MG, CYCLICAL
     Route: 042
     Dates: start: 20170614, end: 20171218
  2. OXALIPLATINO SUN 5 MG/ML, CONCENTRATO PER SOLUZIONE PER INFUSIONE [Suspect]
     Active Substance: OXALIPLATIN
     Indication: CHEMOTHERAPY
     Dosage: 120 MG, CYCLICAL
     Route: 042
     Dates: start: 20170614, end: 20171218

REACTIONS (2)
  - Chills [Recovered/Resolved]
  - Hyperpyrexia [Recovered/Resolved]

NARRATIVE: CASE EVENT DATE: 20171206
